FAERS Safety Report 16587477 (Version 1)
Quarter: 2019Q3

REPORT INFORMATION
  Report Type: Spontaneous
  Country: GB (occurrence: GB)
  Receive Date: 20190717
  Receipt Date: 20190717
  Transmission Date: 20191004
  Serious: Yes (Hospitalization)
  Sender: FDA-Public Use
  Company Number: GB-MYLANLABS-2019M1066942

PATIENT
  Age: 76 Year
  Sex: Male
  Weight: 55 kg

DRUGS (1)
  1. CAPECITABINE. [Suspect]
     Active Substance: CAPECITABINE
     Indication: PROPHYLACTIC CHEMOTHERAPY
     Dosage: UNK, CYCLE,TWO CYCLES
     Route: 048
     Dates: start: 20180911, end: 20181022

REACTIONS (9)
  - Hypovolaemia [Unknown]
  - Pneumonia [Unknown]
  - Palmar-plantar erythrodysaesthesia syndrome [Not Recovered/Not Resolved]
  - Acute kidney injury [Unknown]
  - Diarrhoea [Recovered/Resolved with Sequelae]
  - Conjunctivitis bacterial [Not Recovered/Not Resolved]
  - Hallucination [Unknown]
  - Mucosal inflammation [Unknown]
  - Ulcerative keratitis [Not Recovered/Not Resolved]

NARRATIVE: CASE EVENT DATE: 20181015
